FAERS Safety Report 9618717 (Version 2)
Quarter: 2013Q4

REPORT INFORMATION
  Report Type: Spontaneous
  Country: AU (occurrence: AU)
  Receive Date: 20131014
  Receipt Date: 20131222
  Transmission Date: 20140711
  Serious: Yes (Hospitalization, Other)
  Sender: FDA-Public Use
  Company Number: AU-009507513-1310AUS005092

PATIENT
  Age: 38 Year
  Sex: Female

DRUGS (3)
  1. SAPHRIS [Suspect]
     Indication: BIPOLAR I DISORDER
     Dosage: 5 MG, DAILY
     Route: 060
  2. SERTRALINE HYDROCHLORIDE [Suspect]
     Dosage: 100MG DAILY
     Route: 048
  3. SEROQUEL [Suspect]
     Dosage: 12.5 MG, 2 TIMES
     Route: 048

REACTIONS (4)
  - Serotonin syndrome [Unknown]
  - Rash erythematous [Recovered/Resolved]
  - Underdose [Unknown]
  - Off label use [Unknown]
